FAERS Safety Report 9729472 (Version 2)
Quarter: 2015Q3

REPORT INFORMATION
  Report Type: Spontaneous
  Country: US (occurrence: US)
  Receive Date: 20131204
  Receipt Date: 20150804
  Transmission Date: 20151125
  Serious: No
  Sender: FDA-Public Use
  Company Number: US-GILEAD-2009-0021581

PATIENT
  Sex: Male

DRUGS (11)
  1. LETAIRIS [Suspect]
     Active Substance: AMBRISENTAN
     Indication: PULMONARY ARTERIAL HYPERTENSION
     Route: 048
  2. TRICOR [Concomitant]
     Active Substance: FENOFIBRATE
  3. DIOVAN [Concomitant]
     Active Substance: VALSARTAN
  4. DAPSONE. [Concomitant]
     Active Substance: DAPSONE
  5. ALTACE [Concomitant]
     Active Substance: RAMIPRIL
  6. LIPITOR [Concomitant]
     Active Substance: ATORVASTATIN CALCIUM
  7. VERAPAMIL [Concomitant]
     Active Substance: VERAPAMIL HYDROCHLORIDE
  8. ALLEGRA [Concomitant]
     Active Substance: FEXOFENADINE HYDROCHLORIDE
  9. LASIX [Concomitant]
     Active Substance: FUROSEMIDE
  10. DOXAZOSIN [Concomitant]
     Active Substance: DOXAZOSIN\DOXAZOSIN MESYLATE
  11. ALTARYL [Concomitant]

REACTIONS (1)
  - Fluid retention [Recovering/Resolving]
